FAERS Safety Report 6220343-9 (Version None)
Quarter: 2009Q2

REPORT INFORMATION
  Report Type: 
  Country: None (occurrence: None)
  Receive Date: 20090610
  Receipt Date: 20090529
  Transmission Date: 20091009
  Serious: Yes (Hospitalization)
  Sender: FDA-Public Use
  Company Number: RS-PFIZER INC-2009215345

PATIENT
  Age: 8 Year

DRUGS (9)
  1. GENOTROPIN [Suspect]
     Indication: RENAL FAILURE CHRONIC
     Dosage: 0.9 MG, 1X/DAY
     Route: 058
     Dates: start: 20080819
  2. GENOTROPIN [Suspect]
     Indication: GROWTH RETARDATION
  3. RENAGEL [Concomitant]
     Dosage: 800 MG, 4 TABLETS/DAILY
     Route: 048
  4. RECORMON [Concomitant]
     Dosage: 2000 IJ, ONCE WEEKLY
     Route: 058
  5. LEGOFER [Concomitant]
     Dosage: 800MG/15ML, 4X8.5ML
     Route: 048
  6. ENALAPRIL [Concomitant]
     Dosage: 1.25 MG, EVERY DAY
     Route: 048
  7. ALFACALCIDOL [Concomitant]
     Dosage: 3 CAPS, ONCE WEEKLY
     Route: 048
  8. FOLAN [Concomitant]
     Dosage: 5 MG, EVERY DAY
     Route: 048
  9. NIFEDIPINE [Concomitant]
     Dosage: 20 MG, 2X1/2 TABLET/DAILY
     Route: 048

REACTIONS (4)
  - ALANINE AMINOTRANSFERASE INCREASED [None]
  - ASPARTATE AMINOTRANSFERASE INCREASED [None]
  - GAMMA-GLUTAMYLTRANSFERASE INCREASED [None]
  - YELLOW SKIN [None]
